FAERS Safety Report 8017535-5 (Version None)
Quarter: 2011Q4

REPORT INFORMATION
  Report Type: 
  Country: None (occurrence: None)
  Receive Date: 20111228
  Receipt Date: 20111228
  Transmission Date: 20120403
  Serious: Yes (Disabling, Other)
  Sender: FDA-Public Use
  Company Number: None

PATIENT
  Age: 72 Year
  Sex: Male
  Weight: 74.8435 kg

DRUGS (2)
  1. DOXAZOSIN MESYLATE [Suspect]
     Indication: MICTURITION URGENCY
     Dosage: 1/2 TAB AT BEDTIME ORALLY
     Route: 048
     Dates: start: 20090328, end: 20090330
  2. DOXAZOSIN MESYLATE [Suspect]
     Indication: POLLAKIURIA
     Dosage: 1/2 TAB AT BEDTIME ORALLY
     Route: 048
     Dates: start: 20090328, end: 20090330

REACTIONS (3)
  - CEREBRAL HAEMORRHAGE [None]
  - PARKINSON'S DISEASE [None]
  - BRAIN INJURY [None]
